FAERS Safety Report 8098329 (Version 4)
Quarter: 2013Q1

REPORT INFORMATION
  Report Type: Spontaneous
  Country: US (occurrence: US)
  Receive Date: 20110819
  Receipt Date: 20130129
  Transmission Date: 20140127
  Serious: Yes (Hospitalization, Disabling)
  Sender: FDA-Public Use
  Company Number: US-GLAXOSMITHKLINE-A0940918A

PATIENT
  Age: 41 Year
  Sex: Female

DRUGS (2)
  1. LAMICTAL XR [Suspect]
     Indication: CONVULSION
     Dosage: 50MG PER DAY
     Route: 048
     Dates: start: 20110628, end: 20110712
  2. THYROID MEDICATION [Concomitant]

REACTIONS (14)
  - Stevens-Johnson syndrome [Recovering/Resolving]
  - Toxic epidermal necrolysis [Unknown]
  - Dementia [Unknown]
  - Sputum increased [Recovering/Resolving]
  - Headache [Recovering/Resolving]
  - Urticaria [Recovering/Resolving]
  - Pain [Recovering/Resolving]
  - Skin discolouration [Recovering/Resolving]
  - Blister [Recovering/Resolving]
  - Skin exfoliation [Recovering/Resolving]
  - Bronchitis [Recovering/Resolving]
  - Thermal burn [Not Recovered/Not Resolved]
  - Skin discolouration [Not Recovered/Not Resolved]
  - Depression [Unknown]
